FAERS Safety Report 4785213-1 (Version None)
Quarter: 2005Q3

REPORT INFORMATION
  Report Type: 
  Country: None (occurrence: None)
  Receive Date: 20050929
  Receipt Date: 20050914
  Transmission Date: 20060218
  Serious: Yes (Death)
  Sender: FDA-Public Use
  Company Number: 200512965GDS

PATIENT
  Age: 43 Year

DRUGS (2)
  1. NIFEDIPINE [Suspect]
  2. DIPHENHYDRAMINE [Suspect]

REACTIONS (2)
  - COMPLETED SUICIDE [None]
  - INTENTIONAL MISUSE [None]
